FAERS Safety Report 9059596 (Version 1)
Quarter: 2013Q1

REPORT INFORMATION
  Report Type: Spontaneous
  Country: US (occurrence: None)
  Receive Date: 20130206
  Receipt Date: 20130206
  Transmission Date: 20140127
  Serious: Yes (Other)
  Sender: FDA-Public Use
  Company Number: None

PATIENT
  Age: 45 Year
  Sex: Female
  Weight: 58.97 kg

DRUGS (1)
  1. ZONESAIMED [Suspect]
     Dosage: 50MG  ONCE A DAY
     Dates: start: 20121205, end: 20130204

REACTIONS (4)
  - Skin exfoliation [None]
  - Joint stiffness [None]
  - Visual impairment [None]
  - Speech disorder [None]
